FAERS Safety Report 6905327-7 (Version None)
Quarter: 2010Q3

REPORT INFORMATION
  Report Type: 
  Country: None (occurrence: None)
  Receive Date: 20100804
  Receipt Date: 20100726
  Transmission Date: 20110219
  Serious: Yes (Disabling, Other)
  Sender: FDA-Public Use
  Company Number: US-NAPPMUNDI-USA-2010-0044690

PATIENT
  Age: 71 Year
  Sex: Male
  Weight: 38 kg

DRUGS (2)
  1. MS CONTIN [Suspect]
     Indication: PRODUCT USED FOR UNKNOWN INDICATION
     Dosage: 300 MG, SEE TEXT
     Dates: start: 20100611, end: 20100613
  2. AMBIEN [Concomitant]
     Indication: INSOMNIA
     Dosage: 10 MG, HS

REACTIONS (5)
  - EMBOLIC STROKE [None]
  - HAEMORRHAGIC STROKE [None]
  - INCORRECT DOSE ADMINISTERED [None]
  - RESPIRATORY DEPRESSION [None]
  - WRONG TECHNIQUE IN DRUG USAGE PROCESS [None]
